FAERS Safety Report 7253704-X (Version None)
Quarter: 2011Q1

REPORT INFORMATION
  Report Type: 
  Country: None (occurrence: None)
  Receive Date: 20110129
  Receipt Date: 20100128
  Transmission Date: 20110831
  Serious: No
  Sender: FDA-Public Use
  Company Number: US-ABBOTT-10P-163-0623486-00

PATIENT
  Sex: Male

DRUGS (2)
  1. HUMIRA [Suspect]
     Route: 058
     Dates: start: 20100113
  2. HUMIRA [Suspect]
     Indication: PSORIATIC ARTHROPATHY
     Dates: start: 20090201, end: 20091201

REACTIONS (5)
  - NASOPHARYNGITIS [None]
  - SPUTUM DISCOLOURED [None]
  - OROPHARYNGEAL PAIN [None]
  - NECK PAIN [None]
  - PAIN IN EXTREMITY [None]
